FAERS Safety Report 5683580-8 (Version None)
Quarter: 2008Q2

REPORT INFORMATION
  Report Type: 
  Country: None (occurrence: None)
  Receive Date: 20080319
  Receipt Date: 20071207
  Transmission Date: 20081010
  Serious: Yes (Other)
  Sender: FDA-Public Use
  Company Number: US-WYE-H01187107

PATIENT
  Age: 40 Year
  Sex: Female
  Weight: 93.07 kg

DRUGS (3)
  1. LYBREL [Suspect]
     Indication: ORAL CONTRACEPTION
     Dosage: 1 TABLET 1X PER 1 DAY, ORAL
     Route: 048
     Dates: start: 20071028, end: 20071102
  2. CALCIUM (CALCIUM) [Concomitant]
  3. VITAMIN D [Concomitant]

REACTIONS (3)
  - DYSPNOEA [None]
  - RASH GENERALISED [None]
  - RESPIRATORY DISORDER [None]
